FAERS Safety Report 19799430 (Version 2)
Quarter: 2021Q4

REPORT INFORMATION
  Report Type: Spontaneous
  Country: US (occurrence: US)
  Receive Date: 20210907
  Receipt Date: 20211007
  Transmission Date: 20220303
  Serious: Yes (Other)
  Sender: FDA-Public Use
  Company Number: 2021A703656

PATIENT
  Age: 22 Year
  Sex: Female
  Weight: 96.6 kg

DRUGS (5)
  1. FASENRA [Suspect]
     Active Substance: BENRALIZUMAB
     Indication: Asthma
     Route: 058
     Dates: start: 20210222, end: 20210823
  2. WIXELE [Concomitant]
     Indication: Asthma
     Dates: start: 20210326
  3. ZYRTEC [Concomitant]
     Active Substance: CETIRIZINE HYDROCHLORIDE
     Indication: Hypersensitivity
     Dates: start: 20210412
  4. ALBUTEROL [Concomitant]
     Active Substance: ALBUTEROL
     Indication: Asthma
     Dosage: 2,5 MG/3 ML
     Route: 055
     Dates: start: 20180222, end: 20180423
  5. ALBUTEROL SULFATE [Concomitant]
     Active Substance: ALBUTEROL SULFATE
     Indication: Asthma
     Dosage: 90 MCG/PUFF
     Route: 055
     Dates: start: 20180222, end: 20180423

REACTIONS (5)
  - Exposure during pregnancy [Unknown]
  - Cervical incompetence [Unknown]
  - Suspected COVID-19 [Unknown]
  - Malaise [Unknown]
  - Asthma [Unknown]

NARRATIVE: CASE EVENT DATE: 20190101
